FAERS Safety Report 8138250-3 (Version None)
Quarter: 2012Q1

REPORT INFORMATION
  Report Type: 
  Country: None (occurrence: None)
  Receive Date: 20120215
  Receipt Date: 20110815
  Transmission Date: 20120608
  Serious: No
  Sender: FDA-Public Use
  Company Number: US-SANOFI-AVENTIS-2011SA052743

PATIENT
  Sex: Female

DRUGS (2)
  1. DIABETA [Suspect]
     Route: 048
     Dates: end: 20101101
  2. METFORMIN HCL [Suspect]
     Route: 065

REACTIONS (1)
  - HORMONE LEVEL ABNORMAL [None]
